FAERS Safety Report 11845802 (Version 14)
Quarter: 2018Q1

REPORT INFORMATION
  Report Type: Spontaneous
  Country: CA (occurrence: CA)
  Receive Date: 20151217
  Receipt Date: 20180104
  Transmission Date: 20180508
  Serious: Yes (Hospitalization, Other)
  Sender: FDA-Public Use
  Company Number: CA-PFIZER INC-2015443514

PATIENT
  Age: 44 Year
  Sex: Female

DRUGS (4)
  1. XELJANZ [Suspect]
     Active Substance: TOFACITINIB CITRATE
     Indication: RHEUMATOID ARTHRITIS
     Dosage: 5 MG, TWICE A DAY
     Route: 048
     Dates: start: 20151120, end: 201512
  2. XELJANZ [Suspect]
     Active Substance: TOFACITINIB CITRATE
     Dosage: 5 MG, TWICE A DAY
     Route: 048
     Dates: start: 20161019
  3. XELJANZ [Suspect]
     Active Substance: TOFACITINIB CITRATE
     Dosage: 5 MG, TWICE A DAY
     Route: 048
     Dates: start: 20160122, end: 201604
  4. LEFLUNOMIDE. [Concomitant]
     Active Substance: LEFLUNOMIDE
     Dosage: UNK

REACTIONS (12)
  - Nephritis [Recovering/Resolving]
  - Flank pain [Not Recovered/Not Resolved]
  - Nodule [Recovered/Resolved]
  - Drug dose omission [Unknown]
  - Haematuria [Not Recovered/Not Resolved]
  - Anaemia [Recovering/Resolving]
  - Hypoacusis [Not Recovered/Not Resolved]
  - Kidney infection [Recovered/Resolved]
  - Condition aggravated [Recovered/Resolved]
  - Inflammation [Unknown]
  - Nephrolithiasis [Recovering/Resolving]
  - Ear pain [Not Recovered/Not Resolved]

NARRATIVE: CASE EVENT DATE: 2015
